FAERS Safety Report 5015591-X (Version None)
Quarter: 2006Q2

REPORT INFORMATION
  Report Type: 
  Country: None (occurrence: None)
  Receive Date: 20060601
  Receipt Date: 20060525
  Transmission Date: 20061013
  Serious: Yes (Hospitalization)
  Sender: FDA-Public Use
  Company Number: FR-ROCHE-449360

PATIENT
  Age: 68 Year
  Sex: Female

DRUGS (1)
  1. LOXEN LP [Suspect]
     Indication: HYPERTENSION
     Route: 048

REACTIONS (4)
  - HEART RATE DECREASED [None]
  - HYPOTENSION [None]
  - MALAISE [None]
  - SYNCOPE VASOVAGAL [None]
